FAERS Safety Report 17053495 (Version 1)
Quarter: 2019Q4

REPORT INFORMATION
  Report Type: Spontaneous
  Country: US (occurrence: US)
  Receive Date: 20191120
  Receipt Date: 20191120
  Transmission Date: 20200122
  Serious: No
  Sender: FDA-Public Use
  Company Number: US-PFIZER INC-2019499653

PATIENT
  Age: 90 Year
  Sex: Female
  Weight: 58.5 kg

DRUGS (1)
  1. IBRANCE [Suspect]
     Active Substance: PALBOCICLIB
     Indication: BREAST CANCER METASTATIC
     Dosage: 100 MG, CYCLIC (DL-21 Q28D)
     Route: 048
     Dates: start: 20191004

REACTIONS (1)
  - Fatigue [Unknown]
